FAERS Safety Report 23435552 (Version 1)
Quarter: 2024Q1

REPORT INFORMATION
  Report Type: Report from Study
  Country: DO (occurrence: DO)
  Receive Date: 20240124
  Receipt Date: 20240124
  Transmission Date: 20240410
  Serious: Yes (Other)
  Sender: FDA-Public Use
  Company Number: DO-JNJFOC-20240145046

PATIENT
  Age: 38 Year
  Sex: Female
  Weight: 74 kg

DRUGS (1)
  1. IMBRUVICA [Suspect]
     Active Substance: IBRUTINIB
     Indication: Chronic lymphocytic leukaemia
     Dosage: 1 TABLET
     Route: 048

REACTIONS (4)
  - Sjogren^s syndrome [Unknown]
  - Rash [Unknown]
  - Swelling [Unknown]
  - Influenza [Unknown]

NARRATIVE: CASE EVENT DATE: 20240101
